FAERS Safety Report 5813538-7 (Version None)
Quarter: 2008Q3

REPORT INFORMATION
  Report Type: 
  Country: None (occurrence: None)
  Receive Date: 20080716
  Receipt Date: 20080716
  Transmission Date: 20090109
  Serious: No
  Sender: FDA-Public Use
  Company Number: None

PATIENT
  Sex: Female

DRUGS (2)
  1. CREST SENSITIVE TOOTHPASTE [Suspect]
     Dosage: TWICE A DAY
     Dates: start: 20080601, end: 20080608
  2. CREST SENSITIVE TOOTHPASTE [Suspect]

REACTIONS (4)
  - BLISTER [None]
  - CONDITION AGGRAVATED [None]
  - SENSITIVITY OF TEETH [None]
  - SKIN EXFOLIATION [None]
